FAERS Safety Report 5476101-6 (Version None)
Quarter: 2007Q4

REPORT INFORMATION
  Report Type: 
  Country: None (occurrence: None)
  Receive Date: 20071003
  Receipt Date: 20070921
  Transmission Date: 20080405
  Serious: Yes (Other)
  Sender: FDA-Public Use
  Company Number: DK-ELI_LILLY_AND_COMPANY-DK200709004870

PATIENT
  Age: 34 Year
  Sex: Female

DRUGS (2)
  1. NEOGYNON [Concomitant]
     Route: 048
  2. CYMBALTA [Suspect]
     Indication: ANXIETY
     Dates: start: 20070101, end: 20070821

REACTIONS (10)
  - ASTHENIA [None]
  - DEHYDRATION [None]
  - DRY EYE [None]
  - INCONTINENCE [None]
  - INFLUENZA LIKE ILLNESS [None]
  - MOOD ALTERED [None]
  - NAUSEA [None]
  - PERSONALITY DISORDER [None]
  - SEROTONIN SYNDROME [None]
  - WEIGHT INCREASED [None]
